FAERS Safety Report 20591550 (Version 1)
Quarter: 2022Q1

REPORT INFORMATION
  Report Type: Spontaneous
  Country: CN (occurrence: CN)
  Receive Date: 20220314
  Receipt Date: 20220314
  Transmission Date: 20220423
  Serious: Yes (Hospitalization, Other)
  Sender: FDA-Public Use
  Company Number: CN-009507513-2203CHN004047

PATIENT
  Age: 70 Year
  Sex: Male
  Weight: 60 kg

DRUGS (1)
  1. KEYTRUDA [Suspect]
     Active Substance: PEMBROLIZUMAB
     Indication: Oesophageal carcinoma
     Dosage: 100 MG, EVERY 21 DAYS (Q3W)
     Route: 041
     Dates: start: 20210909, end: 20220104

REACTIONS (4)
  - Troponin abnormal [Unknown]
  - Immune-mediated myocarditis [Recovering/Resolving]
  - Fatigue [Unknown]
  - Underdose [Unknown]

NARRATIVE: CASE EVENT DATE: 20210909
